FAERS Safety Report 5324494-2 (Version None)
Quarter: 2007Q2

REPORT INFORMATION
  Report Type: 
  Country: None (occurrence: None)
  Receive Date: 20070508
  Receipt Date: 20070428
  Transmission Date: 20071010
  Serious: Yes (Death)
  Sender: FDA-Public Use
  Company Number: VISP-NO-0704S-0189

PATIENT
  Age: 55 Year
  Sex: Male
  Weight: 75 kg

DRUGS (2)
  1. VISIPAQUE [Suspect]
     Indication: ATRIOVENTRICULAR BLOCK
     Dosage: 100 ML, SINGLE DOSE, I.V.
     Route: 042
     Dates: start: 20070412, end: 20070412
  2. VISIPAQUE [Suspect]

REACTIONS (4)
  - CARDIAC OUTPUT DECREASED [None]
  - CHILLS [None]
  - LEFT VENTRICULAR DYSFUNCTION [None]
  - RENAL FAILURE ACUTE [None]
